FAERS Safety Report 8261048-2 (Version None)
Quarter: 2012Q2

REPORT INFORMATION
  Report Type: 
  Country: None (occurrence: None)
  Receive Date: 20120405
  Receipt Date: 20120327
  Transmission Date: 20120825
  Serious: Yes (Hospitalization, Other)
  Sender: FDA-Public Use
  Company Number: US-JNJFOC-20120313925

PATIENT
  Sex: Female
  Weight: 97.52 kg

DRUGS (22)
  1. FENTANYL-100 [Suspect]
     Dosage: 1 75 UG/HR PATCH AND 1 50 UG/HR PATCH
     Route: 062
     Dates: start: 20110101, end: 20120101
  2. FENTANYL-100 [Suspect]
     Dosage: 2 75 UG/HR PATCH
     Route: 062
     Dates: start: 20110101, end: 20110101
  3. MOEXIPRIL HYDROCHLORIDE [Concomitant]
     Indication: HYPERTENSION
     Route: 048
     Dates: start: 19990101
  4. LYRICA [Concomitant]
     Indication: NEURALGIA
     Route: 048
     Dates: start: 20110101
  5. XALATAN [Concomitant]
     Indication: GLAUCOMA
     Dosage: 1 DROP
     Route: 031
     Dates: start: 20010101
  6. FENTANYL-100 [Suspect]
     Dosage: NDC # 0781-7244-55
     Route: 062
     Dates: start: 20120201
  7. FENTANYL-100 [Suspect]
     Route: 062
     Dates: start: 20120301
  8. PHRENILIN [Concomitant]
     Indication: MIGRAINE
     Dosage: AS NEEDED
     Route: 048
  9. FENTANYL-100 [Suspect]
     Route: 062
     Dates: start: 20120301
  10. FENTANYL-100 [Suspect]
     Dosage: 1 75 UG/HR PATCH AND 1 50 UG/HR PATCH
     Route: 062
     Dates: start: 20110101, end: 20120101
  11. SYNTHROID [Concomitant]
     Indication: THYROID DISORDER
     Route: 048
     Dates: start: 19940101
  12. FENTANYL-100 [Suspect]
     Dosage: 1 75 UG/HR PATCH AND 1 50 UG/HR PATCH
     Route: 062
     Dates: start: 20110101, end: 20120101
  13. FENTANYL-100 [Suspect]
     Route: 062
     Dates: start: 20120301
  14. FENTANYL-100 [Suspect]
     Indication: NEUROPATHY PERIPHERAL
     Dosage: 2 75 UG/HR PATCH
     Route: 062
     Dates: start: 20110101, end: 20110101
  15. FENTANYL-100 [Suspect]
     Dosage: NDC # 0781-7244-55
     Route: 062
     Dates: start: 20120201
  16. FENTANYL-100 [Suspect]
     Indication: PHANTOM PAIN
     Dosage: 2 75 UG/HR PATCH
     Route: 062
     Dates: start: 20110101, end: 20110101
  17. FENTANYL-100 [Suspect]
     Indication: ARTHRALGIA
     Dosage: NDC # 0781-7244-55
     Route: 062
     Dates: start: 20120201
  18. FLEXERIL [Concomitant]
     Indication: MUSCLE SPASMS
     Dosage: AS NEEDED
     Route: 048
     Dates: start: 20020101
  19. FENTANYL-100 [Suspect]
     Dosage: 1 75 UG/HR PATCH AND 1 50 UG/HR PATCH
     Route: 062
     Dates: start: 20110101, end: 20120101
  20. FENTANYL-100 [Suspect]
     Indication: PAIN IN EXTREMITY
     Route: 062
     Dates: start: 20120301
  21. FENTANYL-100 [Suspect]
     Dosage: NDC # 0781-7244-55
     Route: 062
     Dates: start: 20120201
  22. FENTANYL-100 [Suspect]
     Dosage: 2 75 UG/HR PATCH
     Route: 062
     Dates: start: 20110101, end: 20110101

REACTIONS (8)
  - KIDNEY INFECTION [None]
  - DERMATITIS CONTACT [None]
  - DRY EYE [None]
  - ARTHROPATHY [None]
  - PRODUCT QUALITY ISSUE [None]
  - WRONG TECHNIQUE IN DRUG USAGE PROCESS [None]
  - POOR QUALITY DRUG ADMINISTERED [None]
  - PRODUCT PACKAGING ISSUE [None]
